FAERS Safety Report 24006311 (Version 1)
Quarter: 2024Q2

REPORT INFORMATION
  Report Type: Spontaneous
  Country: US (occurrence: None)
  Receive Date: 20240624
  Receipt Date: 20240624
  Transmission Date: 20240715
  Serious: Yes (Life-Threatening, Hospitalization)
  Sender: FDA-Public Use
  Company Number: None

PATIENT
  Age: 76 Year
  Sex: Male
  Weight: 72 kg

DRUGS (1)
  1. APIXABAN [Suspect]
     Active Substance: APIXABAN
     Indication: Atrial fibrillation
     Dosage: 5 MG EVERY DAY PO
     Route: 048
     Dates: start: 20211216, end: 20230807

REACTIONS (4)
  - Cerebral haemorrhage [None]
  - Mental status changes [None]
  - Haemoglobin decreased [None]
  - Therapy cessation [None]

NARRATIVE: CASE EVENT DATE: 20230807
